FAERS Safety Report 4316424-7 (Version None)
Quarter: 2004Q1

REPORT INFORMATION
  Report Type: 
  Country: None (occurrence: None)
  Receive Date: 20040311
  Receipt Date: 20040226
  Transmission Date: 20041129
  Serious: Yes (Hospitalization)
  Sender: FDA-Public Use
  Company Number: 2004013635

PATIENT
  Age: 83 Year
  Sex: Male
  Weight: 75 kg

DRUGS (2)
  1. LIPITOR [Suspect]
     Indication: ILL-DEFINED DISORDER
     Dosage: 10 MG DAILY
     Dates: start: 19940804
  2. ISOSORBIDE MONONITRATE [Concomitant]

REACTIONS (3)
  - ABNORMAL DREAMS [None]
  - CARDIAC DISORDER [None]
  - PANIC REACTION [None]
